FAERS Safety Report 4950446-8 (Version None)
Quarter: 2006Q1

REPORT INFORMATION
  Report Type: 
  Country: None (occurrence: None)
  Receive Date: 20060322
  Receipt Date: 20060310
  Transmission Date: 20060701
  Serious: Yes (Disabling)
  Sender: FDA-Public Use
  Company Number: 2006AC00414

PATIENT
  Sex: Female

DRUGS (1)
  1. SELOKEEN ZOC [Suspect]
     Indication: ANGINA PECTORIS
     Route: 048

REACTIONS (2)
  - BLINDNESS [None]
  - MACULAR DEGENERATION [None]
